FAERS Safety Report 20683223 (Version 2)
Quarter: 2022Q4

REPORT INFORMATION
  Report Type: Spontaneous
  Country: CN (occurrence: CN)
  Receive Date: 20220407
  Receipt Date: 20221205
  Transmission Date: 20230113
  Serious: Yes (Other)
  Sender: FDA-Public Use
  Company Number: CN-SUN PHARMACEUTICAL INDUSTRIES LTD-2022R1-331645

PATIENT
  Age: 56 Year
  Sex: Male

DRUGS (5)
  1. CARBOPLATIN [Suspect]
     Active Substance: CARBOPLATIN
     Indication: Metastases to meninges
     Dosage: UNK,4 CYCLES
     Route: 065
  2. ABRAXANE [Suspect]
     Active Substance: PACLITAXEL
     Indication: Metastases to meninges
     Dosage: UNK,4 CYCLES
     Route: 065
  3. BEVACIZUMAB [Suspect]
     Active Substance: BEVACIZUMAB
     Indication: Metastases to meninges
     Dosage: UNK,7 CYCLES
     Route: 065
  4. DACOMITINIB [Suspect]
     Active Substance: DACOMITINIB
     Indication: Metastases to meninges
     Dosage: UNK,4 CYCLES
     Route: 065
  5. OSIMERTINIB [Suspect]
     Active Substance: OSIMERTINIB
     Indication: Metastases to meninges
     Dosage: 80 MILLIGRAM, DAILY
     Route: 065
     Dates: start: 201710

REACTIONS (4)
  - Drug ineffective [Unknown]
  - Deafness [Unknown]
  - Gait disturbance [Unknown]
  - Vision blurred [Unknown]

NARRATIVE: CASE EVENT DATE: 20201201
